FAERS Safety Report 19079559 (Version 1)
Quarter: 2021Q1

REPORT INFORMATION
  Report Type: Report from Study
  Country: US (occurrence: US)
  Receive Date: 20210331
  Receipt Date: 20210331
  Transmission Date: 20210420
  Serious: Yes (Death)
  Sender: FDA-Public Use
  Company Number: US-ASTRAZENECA-2021A224598

PATIENT
  Age: 33574 Day
  Sex: Male
  Weight: 88 kg

DRUGS (12)
  1. ALLOPURINOL. [Concomitant]
     Active Substance: ALLOPURINOL
     Dosage: 300.0MG UNKNOWN
  2. ATORVASTATIN [Concomitant]
     Active Substance: ATORVASTATIN
     Dosage: 20.0MG UNKNOWN
  3. SALMETEROL [Concomitant]
     Active Substance: SALMETEROL
     Dosage: 100?50 MCG
  4. OXYCODONE [Concomitant]
     Active Substance: OXYCODONE
     Dosage: 5.0MG UNKNOWN
     Dates: start: 20190107
  5. DILTIAZEM ER [Concomitant]
     Active Substance: DILTIAZEM
     Dosage: 180.0MG UNKNOWN
  6. PROCHLORPERAZINE. [Concomitant]
     Active Substance: PROCHLORPERAZINE
     Dosage: 5.0MG UNKNOWN
  7. FOLIC ACID. [Concomitant]
     Active Substance: FOLIC ACID
     Dosage: 1.0MG UNKNOWN
  8. FINASTERIDE. [Concomitant]
     Active Substance: FINASTERIDE
     Dosage: 5.0MG UNKNOWN
  9. MIRTAZAPINE. [Concomitant]
     Active Substance: MIRTAZAPINE
     Dosage: 15.0MG UNKNOWN
  10. CALQUENCE [Suspect]
     Active Substance: ACALABRUTINIB
     Indication: CHRONIC LYMPHOCYTIC LEUKAEMIA
     Route: 048
     Dates: start: 20210130
  11. ACYCLOVIR. [Concomitant]
     Active Substance: ACYCLOVIR
     Dosage: 400.0MG UNKNOWN
  12. FLUTICASONE. [Concomitant]
     Active Substance: FLUTICASONE

REACTIONS (1)
  - Death [Fatal]

NARRATIVE: CASE EVENT DATE: 20210315
